FAERS Safety Report 9665698 (Version 1)
Quarter: 2013Q4

REPORT INFORMATION
  Report Type: Spontaneous
  Country: US (occurrence: None)
  Receive Date: 20131031
  Receipt Date: 20131031
  Transmission Date: 20140711
  Serious: Yes (Other)
  Sender: FDA-Public Use
  Company Number: None

PATIENT
  Age: 72 Year
  Sex: Male
  Weight: 80.7 kg

DRUGS (1)
  1. PACLITAXEL [Suspect]
     Indication: LUNG SQUAMOUS CELL CARCINOMA STAGE II
     Dosage: 342 MG IN D5W 500 ML INFUSION INTRAVENSOU?
     Route: 042
     Dates: start: 20131028, end: 20131028

REACTIONS (5)
  - Flushing [None]
  - Dyspnoea [None]
  - Hyperhidrosis [None]
  - Infusion related reaction [None]
  - Oxygen saturation decreased [None]
